FAERS Safety Report 8153438-3 (Version None)
Quarter: 2012Q1

REPORT INFORMATION
  Report Type: 
  Country: None (occurrence: None)
  Receive Date: 20120221
  Receipt Date: 20120215
  Transmission Date: 20120608
  Serious: Yes (Other)
  Sender: FDA-Public Use
  Company Number: JP-SANOFI-AVENTIS-2011SA083168

PATIENT
  Sex: Female

DRUGS (3)
  1. TAXOTERE [Suspect]
     Indication: BREAST CANCER
     Dosage: DAILY DOSE:75 MG/M2, 90MG/BODYEVENT OCCURED IN 2ND CYCLE
     Route: 042
     Dates: start: 20111026, end: 20111125
  2. TRASTUZUMAB [Concomitant]
     Dosage: DOSE:318 NOT APPLICABLE
     Dates: start: 20111026, end: 20111124
  3. TRASTUZUMAB [Concomitant]
     Dates: start: 20120117

REACTIONS (3)
  - OCULAR HYPERAEMIA [None]
  - ERYTHEMA [None]
  - OCULOMUCOCUTANEOUS SYNDROME [None]
